FAERS Safety Report 15400962 (Version 2)
Quarter: 2018Q4

REPORT INFORMATION
  Report Type: Report from Study
  Country: US (occurrence: US)
  Receive Date: 20180919
  Receipt Date: 20181030
  Transmission Date: 20190204
  Serious: Yes (Hospitalization)
  Sender: FDA-Public Use
  Company Number: US-JNJFOC-20180819654

PATIENT
  Age: 80 Year
  Sex: Male

DRUGS (11)
  1. DULCOLAX NOS [Concomitant]
     Active Substance: BISACODYL OR DOCUSATE SODIUM
  2. NORVASC [Concomitant]
     Active Substance: AMLODIPINE BESYLATE
  3. PRILOSEC [Concomitant]
     Active Substance: OMEPRAZOLE MAGNESIUM
  4. IMBRUVICA [Suspect]
     Active Substance: IBRUTINIB
     Indication: CHRONIC LYMPHOCYTIC LEUKAEMIA
     Route: 048
     Dates: start: 20160123
  5. HYDROCHLORIC ACID [Concomitant]
     Active Substance: HYDROCHLORIC ACID
  6. HYDRALAZINE [Concomitant]
     Active Substance: HYDRALAZINE HYDROCHLORIDE
     Route: 048
  7. INSULIN GLARGINE [Concomitant]
     Active Substance: INSULIN GLARGINE
     Dosage: 100 UNITS/ML, DAILY BEFORE BREAKFAST
     Route: 058
  8. TYLENOL [Concomitant]
     Active Substance: ACETAMINOPHEN
     Dosage: 500 MG, QBEDTIME
     Route: 048
  9. IMBRUVICA [Suspect]
     Active Substance: IBRUTINIB
     Indication: CHRONIC LYMPHOCYTIC LEUKAEMIA
     Route: 048
     Dates: start: 20180711
  10. DOCUSATE SODIUM W/SENNOSIDE A+B [Concomitant]
     Active Substance: DOCUSATE SODIUM\SENNOSIDES A AND B
     Dosage: 50 MG-8.6 MG, 2 TABS, BEDTIME
     Route: 048
  11. FLUTICASONE PROPIONATE W/SALMETEROL XINAFOATE [Concomitant]
     Active Substance: FLUTICASONE PROPIONATE\SALMETEROL XINAFOATE
     Dosage: 250 MCG-50 MCG, 1 PUFFS, INHALE, BID

REACTIONS (11)
  - Nephrogenic anaemia [Unknown]
  - Urinary tract obstruction [Unknown]
  - Medical device site infection [Unknown]
  - Sepsis [Unknown]
  - Cellulitis [Unknown]
  - Urinary tract infection [Unknown]
  - Bacterial infection [Unknown]
  - Candida infection [Unknown]
  - Renal failure [Recovering/Resolving]
  - Phantom pain [Unknown]
  - Cellulitis [Unknown]

NARRATIVE: CASE EVENT DATE: 20180808
